FAERS Safety Report 6502943-1 (Version None)
Quarter: 2009Q4

REPORT INFORMATION
  Report Type: 
  Country: None (occurrence: None)
  Receive Date: 20091217
  Receipt Date: 20091207
  Transmission Date: 20100525
  Serious: Yes (Other)
  Sender: FDA-Public Use
  Company Number: PHHY2009AU38330

PATIENT
  Sex: Male

DRUGS (11)
  1. GLEEVEC [Suspect]
     Indication: CHRONIC MYELOID LEUKAEMIA
     Dosage: 400 MG, UNK
     Dates: start: 20090801
  2. CEFUROXIME AXETIL [Concomitant]
  3. COPANOL [Concomitant]
  4. STAPHALEX [Concomitant]
  5. PROCID [Concomitant]
  6. PULMICORT [Concomitant]
  7. GABAPENTIN [Concomitant]
  8. BACLOFEN [Concomitant]
  9. IMMOBIC [Concomitant]
  10. NEXAMIM [Concomitant]
  11. ENDEP [Concomitant]

REACTIONS (6)
  - DRY MOUTH [None]
  - HIP ARTHROPLASTY [None]
  - HOT FLUSH [None]
  - NAUSEA [None]
  - STAPHYLOCOCCAL INFECTION [None]
  - VOMITING [None]
